FAERS Safety Report 22148704 (Version 1)
Quarter: 2023Q1

REPORT INFORMATION
  Report Type: Spontaneous
  Country: JP (occurrence: JP)
  Receive Date: 20230328
  Receipt Date: 20230328
  Transmission Date: 20230418
  Serious: Yes (Death, Disabling, Other)
  Sender: FDA-Public Use
  Company Number: JP-MSD-M2022-41093

PATIENT
  Sex: Female
  Weight: 52 kg

DRUGS (2)
  1. KEYTRUDA [Suspect]
     Active Substance: PEMBROLIZUMAB
     Indication: Endometrial cancer stage IV
     Dosage: 200 MILLIGRAM, Q3W
     Route: 041
     Dates: start: 20191219, end: 20200928
  2. KEYTRUDA [Suspect]
     Active Substance: PEMBROLIZUMAB
     Dosage: 400 MILLIGRAM, EVERY 6 WEEKS
     Route: 041
     Dates: start: 20201019, end: 20220422

REACTIONS (14)
  - Sepsis [Fatal]
  - Multiple organ dysfunction syndrome [Fatal]
  - Malignant neoplasm progression [Unknown]
  - Septic shock [Unknown]
  - Gastric ulcer [Unknown]
  - Renal infarct [Unknown]
  - Type 2 diabetes mellitus [Unknown]
  - Adrenal insufficiency [Recovering/Resolving]
  - Hypopituitarism [Not Recovered/Not Resolved]
  - Hypothyroidism [Unknown]
  - Hypokalaemia [Unknown]
  - Venous thrombosis [Unknown]
  - Blood albumin decreased [Recovering/Resolving]
  - Hypocalcaemia [Unknown]

NARRATIVE: CASE EVENT DATE: 20200101
